FAERS Safety Report 18629717 (Version 1)
Quarter: 2020Q4

REPORT INFORMATION
  Report Type: Spontaneous
  Country: SK (occurrence: SK)
  Receive Date: 20201217
  Receipt Date: 20201217
  Transmission Date: 20210114
  Serious: Yes (Hospitalization, Other)
  Sender: FDA-Public Use
  Company Number: SK-TEVA-2020-SK-1859960

PATIENT
  Age: 17 Year
  Sex: Male

DRUGS (1)
  1. ISOTRETINOIN. [Suspect]
     Active Substance: ISOTRETINOIN
     Indication: ACNE
     Route: 065

REACTIONS (5)
  - Depression [Recovered/Resolved]
  - Psychotic disorder [Recovered/Resolved]
  - Suicidal ideation [Recovered/Resolved]
  - Tic [Recovered/Resolved]
  - Epilepsy [Unknown]
